FAERS Safety Report 5151160-9 (Version None)
Quarter: 2006Q4

REPORT INFORMATION
  Report Type: 
  Country: None (occurrence: None)
  Receive Date: 20061115
  Receipt Date: 20061102
  Transmission Date: 20070319
  Serious: Yes (Other)
  Sender: FDA-Public Use
  Company Number: PHFR2006GB03267

PATIENT

DRUGS (1)
  1. LIORESAL [Suspect]
     Route: 065
     Dates: end: 20060901

REACTIONS (2)
  - DRUG WITHDRAWAL SYNDROME [None]
  - PSYCHOTIC DISORDER [None]
